FAERS Safety Report 7120148-0 (Version None)
Quarter: 2010Q4

REPORT INFORMATION
  Report Type: 
  Country: None (occurrence: None)
  Receive Date: 20101123
  Receipt Date: 20101027
  Transmission Date: 20110411
  Serious: Yes (Hospitalization, Other)
  Sender: FDA-Public Use
  Company Number: JP-AMGEN-JPNSP2010001497

PATIENT

DRUGS (10)
  1. NEUPOGEN [Suspect]
     Indication: PRODUCT USED FOR UNKNOWN INDICATION
     Dosage: 50 A?G, QD
     Route: 042
     Dates: start: 20100519, end: 20100522
  2. VALIXA [Suspect]
     Indication: SMALL INTESTINE TRANSPLANT
     Dosage: 450 MG, UNK
     Route: 048
     Dates: start: 20091127, end: 20100519
  3. BAKTAR [Suspect]
     Indication: SMALL INTESTINE TRANSPLANT
     Dosage: UNK
     Route: 048
     Dates: start: 20091127
  4. ACYCLOVIR [Suspect]
     Indication: SMALL INTESTINE TRANSPLANT
     Dosage: UNK
     Route: 048
     Dates: start: 20091130
  5. MYCOCYST [Suspect]
     Indication: PRODUCT USED FOR UNKNOWN INDICATION
     Dosage: 100 MG, UNK
     Dates: start: 20091127
  6. TAKEPRON [Suspect]
     Indication: PRODUCT USED FOR UNKNOWN INDICATION
     Dosage: 15 MG, UNK
     Route: 048
     Dates: start: 20091127
  7. PREDNISOLONE [Suspect]
     Indication: PRODUCT USED FOR UNKNOWN INDICATION
     Dosage: UNK
     Route: 048
     Dates: start: 20091027, end: 20100513
  8. PROGRAF [Suspect]
     Indication: PRODUCT USED FOR UNKNOWN INDICATION
     Dosage: UNK
     Route: 048
  9. DIPYRIDAMOLE [Concomitant]
  10. BIOFERMIN [Concomitant]

REACTIONS (1)
  - NEUTROPENIA [None]
